FAERS Safety Report 13839485 (Version 1)
Quarter: 2017Q3

REPORT INFORMATION
  Report Type: Spontaneous
  Country: US (occurrence: US)
  Receive Date: 20170805
  Receipt Date: 20170805
  Transmission Date: 20171127
  Serious: No
  Sender: FDA-Public Use
  Company Number: None

PATIENT
  Age: 64 Year
  Sex: Female

DRUGS (15)
  1. ASPIRIN. [Concomitant]
     Active Substance: ASPIRIN
  2. MONTELUKAST [Concomitant]
     Active Substance: MONTELUKAST SODIUM
  3. ERYTHROMYCIN OPTH [Concomitant]
  4. GABAPENTIN. [Concomitant]
     Active Substance: GABAPENTIN
  5. OMEPRAZOLE. [Concomitant]
     Active Substance: OMEPRAZOLE
  6. ISOVUE [Suspect]
     Active Substance: IOPAMIDOL
     Indication: COMPUTERISED TOMOGRAM
     Route: 042
     Dates: start: 20161227
  7. ALBUTEROL NEBULIZING SOLUTION [Concomitant]
  8. ALPRAZOLAM. [Concomitant]
     Active Substance: ALPRAZOLAM
  9. FLUTICASONE. [Concomitant]
     Active Substance: FLUTICASONE
  10. TIOTROPIUM [Concomitant]
     Active Substance: TIOTROPIUM
  11. AMLODIPINE [Concomitant]
     Active Substance: AMLODIPINE BESYLATE
  12. BUPROPION. [Concomitant]
     Active Substance: BUPROPION
  13. NICOTINE. [Concomitant]
     Active Substance: NICOTINE
  14. ATORVASTATIN [Concomitant]
     Active Substance: ATORVASTATIN
  15. PREDNISONE. [Concomitant]
     Active Substance: PREDNISONE

REACTIONS (3)
  - Pruritus [None]
  - Erythema [None]
  - Flushing [None]

NARRATIVE: CASE EVENT DATE: 20161227
